FAERS Safety Report 6934928-5 (Version None)
Quarter: 2010Q3

REPORT INFORMATION
  Report Type: 
  Country: None (occurrence: None)
  Receive Date: 20100821
  Receipt Date: 20100810
  Transmission Date: 20110219
  Serious: Yes (Hospitalization)
  Sender: FDA-Public Use
  Company Number: GXKR2010NO08958

PATIENT
  Age: 75 Year
  Sex: Male

DRUGS (5)
  1. RAMIPRIL [Interacting]
     Indication: CARDIAC FAILURE
     Dosage: 10 MG, IN THE MORNING
     Route: 065
  2. SPIRONOLACTONE [Interacting]
     Indication: CARDIAC FAILURE
     Dosage: 25 MG, INT THE MORNING
     Route: 065
  3. METOPROLOL (NGX) [Suspect]
     Indication: CARDIAC FAILURE
     Dosage: 100 MG, IN THE MORNING
     Route: 065
  4. BUMETANIDE (NGX) [Interacting]
     Indication: CARDIAC FAILURE
     Dosage: 1.5 MG, IN THE MORNING
     Route: 065
  5. DIGITOXIN [Concomitant]
     Indication: CARDIAC FAILURE
     Dosage: 50 UG, IN THE MORNING
     Route: 065

REACTIONS (11)
  - ACUTE PRERENAL FAILURE [None]
  - BRADYCARDIA [None]
  - CARDIOGENIC SHOCK [None]
  - CONFUSIONAL STATE [None]
  - DEPRESSED LEVEL OF CONSCIOUSNESS [None]
  - HAEMODIALYSIS [None]
  - HYPERKALAEMIA [None]
  - HYPOTENSION [None]
  - METABOLIC ACIDOSIS [None]
  - OLIGURIA [None]
  - PERIPHERAL COLDNESS [None]
